FAERS Safety Report 19246323 (Version 1)
Quarter: 2021Q2

REPORT INFORMATION
  Report Type: Spontaneous
  Country: US (occurrence: US)
  Receive Date: 20210511
  Receipt Date: 20210511
  Transmission Date: 20210717
  Serious: Yes (Hospitalization)
  Sender: FDA-Public Use
  Company Number: None

PATIENT
  Age: 78 Year
  Sex: Male

DRUGS (26)
  1. PREDISIONE [Concomitant]
  2. TRIAM/HCTZ [Concomitant]
     Active Substance: HYDROCHLOROTHIAZIDE\TRIAMTERENE
  3. AMLODIPINE [Concomitant]
     Active Substance: AMLODIPINE BESYLATE
  4. DOXAZOSINE [Concomitant]
     Active Substance: DOXAZOSIN MESYLATE
  5. JANUMENT [Concomitant]
  6. ONE TOUCH [Concomitant]
     Active Substance: DEXTROSE
  7. VENLAFAXINE [Concomitant]
     Active Substance: VENLAFAXINE HYDROCHLORIDE
  8. FENOFIRBATE [Concomitant]
  9. ROSUVASTATIN. [Concomitant]
     Active Substance: ROSUVASTATIN
  10. SILODOSIN. [Concomitant]
     Active Substance: SILODOSIN
  11. CRESTOR [Concomitant]
     Active Substance: ROSUVASTATIN CALCIUM
  12. OMEGA 3 [Concomitant]
     Active Substance: OMEGA-3 FATTY ACIDS
  13. PIOGLITAZONDE [Concomitant]
  14. REPAGLINIDE. [Concomitant]
     Active Substance: REPAGLINIDE
  15. VITAMIN D3 [Concomitant]
     Active Substance: CHOLECALCIFEROL
  16. ALLOPURINOL. [Concomitant]
     Active Substance: ALLOPURINOL
  17. DDAVP [Concomitant]
     Active Substance: DESMOPRESSIN ACETATE
  18. VALSARTAN. [Concomitant]
     Active Substance: VALSARTAN
  19. SYNTHROID [Concomitant]
     Active Substance: LEVOTHYROXINE SODIUM
  20. FLUOXETINE [Concomitant]
     Active Substance: FLUOXETINE HYDROCHLORIDE
  21. METFORMIN [Concomitant]
     Active Substance: METFORMIN HYDROCHLORIDE
  22. TAMSULOSIN [Concomitant]
     Active Substance: TAMSULOSIN
  23. NUTROPIN AQ [Suspect]
     Active Substance: SOMATROPIN
     Indication: DWARFISM
     Route: 058
     Dates: start: 20150702
  24. DESMOPRESSIN [Concomitant]
     Active Substance: DESMOPRESSIN
  25. FISH OIL [Concomitant]
     Active Substance: FISH OIL
  26. IRBESARTAN. [Concomitant]
     Active Substance: IRBESARTAN

REACTIONS (2)
  - Blood urine present [None]
  - Infection [None]

NARRATIVE: CASE EVENT DATE: 20210326
